FAERS Safety Report 17905028 (Version 1)
Quarter: 2020Q2

REPORT INFORMATION
  Report Type: Spontaneous
  Country: US (occurrence: US)
  Receive Date: 20200617
  Receipt Date: 20200617
  Transmission Date: 20200714
  Serious: No
  Sender: FDA-Public Use
  Company Number: US-ALLERGAN-1943293US

PATIENT
  Age: 84 Year
  Sex: Female

DRUGS (2)
  1. VIBERZI [Suspect]
     Active Substance: ELUXADOLINE
     Indication: IRRITABLE BOWEL SYNDROME
     Dosage: ONE QUARTER PILL
     Route: 065
     Dates: start: 201910, end: 201910
  2. VIBERZI [Suspect]
     Active Substance: ELUXADOLINE
     Dosage: 2 DF, QD
     Route: 065
     Dates: start: 201910, end: 201910

REACTIONS (5)
  - Gait inability [Unknown]
  - Fatigue [Unknown]
  - Incorrect dose administered [Unknown]
  - Wrong technique in product usage process [Unknown]
  - Diarrhoea [Unknown]

NARRATIVE: CASE EVENT DATE: 201910
